FAERS Safety Report 15934971 (Version 1)
Quarter: 2019Q1

REPORT INFORMATION
  Report Type: Spontaneous
  Country: CN (occurrence: CN)
  Receive Date: 20190207
  Receipt Date: 20190207
  Transmission Date: 20190417
  Serious: Yes (Other)
  Sender: FDA-Public Use
  Company Number: CN-INCYTE CORPORATION-2019IN000897

PATIENT

DRUGS (1)
  1. JAKAVI [Suspect]
     Active Substance: RUXOLITINIB
     Indication: CHRONIC LEUKAEMIA
     Dosage: 5 MG, BID
     Route: 048

REACTIONS (5)
  - Platelet count decreased [Recovered/Resolved]
  - Drug ineffective [Unknown]
  - Anaemia [Recovered/Resolved]
  - Product use in unapproved indication [Unknown]
  - Chronic myeloid leukaemia [Recovered/Resolved]
